FAERS Safety Report 6523648-7 (Version None)
Quarter: 2009Q4

REPORT INFORMATION
  Report Type: 
  Country: None (occurrence: None)
  Receive Date: 20091231
  Receipt Date: 20091222
  Transmission Date: 20100525
  Serious: Yes (Hospitalization)
  Sender: FDA-Public Use
  Company Number: US-ALEXION-A200901056

PATIENT
  Sex: Male

DRUGS (3)
  1. SOLIRIS [Suspect]
     Indication: PAROXYSMAL NOCTURNAL HAEMOGLOBINURIA
     Dosage: 600 MG, QW X4
     Route: 042
     Dates: start: 20090918, end: 20091009
  2. SOLIRIS [Suspect]
     Dosage: 900 MG, Q2W
     Route: 042
     Dates: start: 20091016, end: 20091101
  3. SOLIRIS [Suspect]
     Dosage: 600 MG, RE-INDUCTION DOSE
     Route: 042
     Dates: start: 20091216

REACTIONS (8)
  - CELLULITIS [None]
  - CHILLS [None]
  - ERYTHEMA [None]
  - HAEMOGLOBIN DECREASED [None]
  - ORAL DISORDER [None]
  - PAIN IN EXTREMITY [None]
  - PLATELET COUNT DECREASED [None]
  - PYREXIA [None]
